FAERS Safety Report 5958297-2 (Version None)
Quarter: 2008Q4

REPORT INFORMATION
  Report Type: 
  Country: None (occurrence: None)
  Receive Date: 20081107
  Receipt Date: 20081028
  Transmission Date: 20090506
  Serious: Yes (Other)
  Sender: FDA-Public Use
  Company Number: 2008BI029104

PATIENT
  Age: 70 Year
  Sex: Female

DRUGS (2)
  1. TYSABRI [Suspect]
     Indication: MULTIPLE SCLEROSIS
     Dosage: 300MG;QM;IV
     Route: 042
     Dates: start: 20070329
  2. LOW DOSE STEROID [Concomitant]

REACTIONS (1)
  - MALIGNANT MELANOMA [None]
